FAERS Safety Report 10161757 (Version 1)
Quarter: 2014Q2

REPORT INFORMATION
  Report Type: Spontaneous
  Country: GB (occurrence: None)
  Receive Date: 20140507
  Receipt Date: 20140507
  Transmission Date: 20141212
  Serious: Yes (Disabling, Other)
  Sender: FDA-Public Use
  Company Number: AUR-APL-2014-05363

PATIENT
  Age: 29 Year
  Sex: Male
  Weight: 61.68 kg

DRUGS (2)
  1. FLUOXETINE [Suspect]
     Indication: SEASONAL AFFECTIVE DISORDER
     Dosage: 20 MG, 1 IN 1 D
     Route: 048
     Dates: start: 20110205, end: 20110810
  2. VIAGRA (SILDENAFIL CITRATE) [Concomitant]

REACTIONS (6)
  - Male sexual dysfunction [None]
  - Loss of libido [None]
  - Erectile dysfunction [None]
  - Anorgasmia [None]
  - Hypoaesthesia [None]
  - Asthenia [None]
